FAERS Safety Report 18404876 (Version 1)
Quarter: 2020Q4

REPORT INFORMATION
  Report Type: Spontaneous
  Country: US (occurrence: US)
  Receive Date: 20201020
  Receipt Date: 20201020
  Transmission Date: 20210114
  Serious: No
  Sender: FDA-Public Use
  Company Number: None

PATIENT
  Age: 73 Year
  Sex: Male
  Weight: 74.25 kg

DRUGS (4)
  1. TAMSULOSIN [Concomitant]
     Active Substance: TAMSULOSIN
  2. VITAMIN D [Concomitant]
     Active Substance: VITAMIN D NOS
  3. CALCIUM CARBONATE. [Concomitant]
     Active Substance: CALCIUM CARBONATE
  4. PROLIA [Suspect]
     Active Substance: DENOSUMAB
     Indication: OSTEOPOROSIS
     Dosage: ?          QUANTITY:1 INJECTION(S);OTHER FREQUENCY:EACH SIX MONTHS;?
     Route: 058
     Dates: start: 20201007

REACTIONS (2)
  - Injection site induration [None]
  - Injection site discolouration [None]

NARRATIVE: CASE EVENT DATE: 20201009
